APPROVED DRUG PRODUCT: ALPRAZOLAM
Active Ingredient: ALPRAZOLAM
Strength: 3MG
Dosage Form/Route: TABLET, EXTENDED RELEASE;ORAL
Application: A077777 | Product #004
Applicant: SANDOZ INC
Approved: Jun 30, 2006 | RLD: No | RS: No | Type: DISCN